FAERS Safety Report 5392594-7 (Version None)
Quarter: 2007Q3

REPORT INFORMATION
  Report Type: 
  Country: None (occurrence: None)
  Receive Date: 20070720
  Receipt Date: 20070717
  Transmission Date: 20080115
  Serious: Yes (Hospitalization)
  Sender: FDA-Public Use
  Company Number: DE-ALLERGAN-0707643US

PATIENT
  Sex: Male

DRUGS (3)
  1. BLINDED BOTULINUM TOXIN TYPE A - GENERAL [Suspect]
     Indication: BLEPHAROSPASM
  2. BLINDED BOTULINUM TOXIN TYPE A UNK [Suspect]
     Indication: BLEPHAROSPASM
  3. ENALAPRIL MALEATE [Concomitant]
     Indication: HYPERTENSION

REACTIONS (1)
  - ANGIOEDEMA [None]
